FAERS Safety Report 20411232 (Version 1)
Quarter: 2022Q1

REPORT INFORMATION
  Report Type: Spontaneous
  Country: US (occurrence: None)
  Receive Date: 20220201
  Receipt Date: 20220201
  Transmission Date: 20220423
  Serious: Yes (Hospitalization)
  Sender: FDA-Public Use
  Company Number: None

PATIENT
  Age: 53 Year
  Sex: Male

DRUGS (1)
  1. IMATINIB MESYLATE [Suspect]
     Active Substance: IMATINIB MESYLATE
     Dosage: FREQUENCY : DAILY;?
     Route: 048
     Dates: start: 201910

REACTIONS (5)
  - Renal disorder [None]
  - Fatigue [None]
  - Therapy interrupted [None]
  - Immunisation reaction [None]
  - Bronchitis [None]

NARRATIVE: CASE EVENT DATE: 20220111
